FAERS Safety Report 8157126-9 (Version None)
Quarter: 2012Q1

REPORT INFORMATION
  Report Type: 
  Country: None (occurrence: None)
  Receive Date: 20120222
  Receipt Date: 20120216
  Transmission Date: 20120608
  Serious: Yes (Life-Threatening)
  Sender: FDA-Public Use
  Company Number: JP-ROCHE-1035658

PATIENT
  Age: 56 Year
  Sex: Female
  Weight: 43 kg

DRUGS (4)
  1. AVASTIN [Suspect]
     Indication: COLON CANCER METASTATIC
     Route: 041
     Dates: start: 20110330, end: 20111007
  2. OXALIPLATIN [Suspect]
     Indication: COLON CANCER METASTATIC
     Route: 041
     Dates: start: 20110330, end: 20111007
  3. XELODA [Suspect]
     Indication: COLON CANCER METASTATIC
     Dosage: DRUG REPORTED AS XELODA 300
     Route: 048
     Dates: start: 20110330, end: 20111009
  4. LOXONIN [Suspect]
     Indication: LARGE INTESTINE CARCINOMA
     Route: 048
     Dates: start: 20110301

REACTIONS (1)
  - LARGE INTESTINE PERFORATION [None]
